FAERS Safety Report 5480998-3 (Version None)
Quarter: 2007Q4

REPORT INFORMATION
  Report Type: 
  Country: None (occurrence: None)
  Receive Date: 20071004
  Receipt Date: 20070919
  Transmission Date: 20080405
  Serious: Yes (Death)
  Sender: FDA-Public Use
  Company Number: 100#08#2007-03713

PATIENT
  Age: 4 Year
  Sex: Female

DRUGS (11)
  1. CARBOPLATIN [Suspect]
     Indication: NEUROBLASTOMA
     Dosage: 2 X 750 MG/M2;
  2. CISPLATIN [Suspect]
     Indication: NEUROBLASTOMA
     Dosage: 3 X 80 MG/M2; (ADDITIONAL COURSE)
  3. DOXORUBICIN HCL [Suspect]
     Indication: NEUROBLASTOMA
     Dosage: 25 MG/M2/DAY; 40 MG/M2 (ADDITIONAL COURSE)
  4. TRETINOIN [Suspect]
     Indication: NEUROBLASTOMA
     Dosage: 5.33 MG/KG/DAY
  5. DACARBAZINE [Suspect]
     Indication: NEUROBLASTOMA
     Dosage: 750 MG/M2
  6. VINCRISTINE [Suspect]
     Indication: NEUROBLASTOMA
     Dosage: 6 X 1.5 MG/M2, 0.05 MG/KG (ADDITIONAL COURSE), 2 MG/M2 (ADDITIONAL COURSE)
  7. ETOPOSIDE [Suspect]
     Indication: NEUROBLASTOMA
     Dosage: 3 X 175 MG/M2/DAY
  8. CYCLOPHOSPHAMIDE [Suspect]
     Indication: NEUROBLASTOMA
     Dosage: 1 X 1.05 G/M2/DAY, 600 MG/M2 (ADDITIONAL COURSE, 750 MG/M2 (ADDITIONAL COURSE);
  9. BUSULFAN (BUSULFAN) (BUSULFAN) [Suspect]
     Indication: NEUROBLASTOMA
     Dosage: 150 MG/M2/DAY;
  10. MELPHALAN (MELPHALAN) (MELPHALAN) [Suspect]
     Indication: NEUROBLASTOMA
     Dosage: 140 MG/M2
  11. CHLORMETHINE (CHLORMETHINE) (CHLORMETHINE) [Suspect]
     Indication: NEUROBLASTOMA
     Dosage: 2 MG/M2

REACTIONS (6)
  - ACUTE MYELOID LEUKAEMIA [None]
  - CANDIDIASIS [None]
  - GENE MUTATION [None]
  - NEUROBLASTOMA RECURRENT [None]
  - NODULE ON EXTREMITY [None]
  - STEM CELL TRANSPLANT [None]
